FAERS Safety Report 20394229 (Version 1)
Quarter: 2022Q1

REPORT INFORMATION
  Report Type: Spontaneous
  Country: US (occurrence: US)
  Receive Date: 20220129
  Receipt Date: 20220129
  Transmission Date: 20220423
  Serious: No
  Sender: FDA-Public Use
  Company Number: US-drreddys-SPO/USA/22/0146113

PATIENT
  Age: 18 Year
  Sex: Female

DRUGS (2)
  1. ZENATANE [Suspect]
     Active Substance: ISOTRETINOIN
     Indication: Product used for unknown indication
     Dosage: RMA ISSUE DATE: 28 MAY 2021 02:55:55 PM, 30 JUNE 2021 12:11:16 PM
  2. ZENATANE [Suspect]
     Active Substance: ISOTRETINOIN
     Dosage: RMA ISSUE DATE: 10 AUGUST 2021 02:08:27 PM, 29 SEPTEMBER 2021 03:10:05 PM, 24 NOVEMBER 2021 11:26:19

REACTIONS (1)
  - Adverse drug reaction [Unknown]
